FAERS Safety Report 5736753-X (Version None)
Quarter: 2008Q2

REPORT INFORMATION
  Report Type: 
  Country: None (occurrence: None)
  Receive Date: 20080513
  Receipt Date: 20080508
  Transmission Date: 20081010
  Serious: Yes (Other)
  Sender: FDA-Public Use
  Company Number: GB-BOEHRINGER INGELHEIM GMBH, GERMANY-2008-UK-01148UK

PATIENT
  Age: 64 Year
  Sex: Male

DRUGS (19)
  1. SPIRIVA [Suspect]
     Indication: CHRONIC OBSTRUCTIVE PULMONARY DISEASE
     Route: 055
     Dates: start: 20080331, end: 20080401
  2. ASPIRIN [Concomitant]
  3. BISOPROLOL FUMARATE [Concomitant]
  4. DIPYRIDAMOLE [Concomitant]
  5. ELANTAN [Concomitant]
  6. ESOMEPRAZOLE [Concomitant]
  7. FOLIC ACID [Concomitant]
  8. FUROSEMIDE [Concomitant]
  9. GLYCERYL TRINITRATE [Concomitant]
     Dosage: AS NECESSARY
     Route: 060
  10. IPRATROPIUM BROMIDE [Concomitant]
     Route: 055
  11. MECYSTEINE [Concomitant]
  12. METHOTREXATE [Concomitant]
     Dosage: 2.5MG ONCE EVERY 10 WEEKS
  13. NICORANDIL [Concomitant]
  14. ACETAMINOPHEN [Concomitant]
  15. PERINDOPRIL ERBUMINE [Concomitant]
  16. PREDNISOLONE [Concomitant]
  17. ROSUVASTATIN [Concomitant]
  18. ALBUTEROL [Concomitant]
     Dosage: AS NECESSARY
  19. SERETIDE [Concomitant]

REACTIONS (1)
  - ANAPHYLACTIC REACTION [None]
